FAERS Safety Report 4974196-7 (Version None)
Quarter: 2006Q2

REPORT INFORMATION
  Report Type: 
  Country: None (occurrence: None)
  Receive Date: 20060417
  Receipt Date: 20050609
  Transmission Date: 20061013
  Serious: Yes (Hospitalization)
  Sender: FDA-Public Use
  Company Number: US-MERCK-0506USA01562

PATIENT
  Age: 76 Year
  Sex: Female
  Weight: 86 kg

DRUGS (13)
  1. VIOXX [Suspect]
     Indication: ARTHRITIS
     Route: 048
     Dates: start: 20010101, end: 20031110
  2. LOPRESSOR [Concomitant]
     Indication: HYPERTENSION
     Route: 065
  3. LOPRESSOR [Concomitant]
     Indication: CARDIAC DISORDER
     Route: 065
  4. LASIX [Concomitant]
     Route: 065
  5. ASPIRIN [Concomitant]
     Route: 065
  6. PLAVIX [Concomitant]
     Indication: ANTIPLATELET THERAPY
     Route: 065
  7. LIPITOR [Concomitant]
     Indication: BLOOD CHOLESTEROL INCREASED
     Route: 065
  8. PREMARIN [Concomitant]
     Indication: HORMONE REPLACEMENT THERAPY
     Route: 065
     Dates: start: 19990101, end: 20020101
  9. TYLENOL (CAPLET) [Concomitant]
     Route: 065
  10. POTASSIUM (UNSPECIFIED) [Concomitant]
     Route: 065
  11. GLYBURIDE [Concomitant]
     Route: 065
  12. AVANDIA [Concomitant]
     Route: 065
     Dates: end: 20031110
  13. VICODIN [Concomitant]
     Route: 065

REACTIONS (27)
  - ANGINA PECTORIS [None]
  - ARTHRALGIA [None]
  - ATRIAL FIBRILLATION [None]
  - BACK PAIN [None]
  - BRADYCARDIA [None]
  - BREAST CANCER [None]
  - CARDIAC FAILURE CONGESTIVE [None]
  - CARDIAC MURMUR [None]
  - CEREBROVASCULAR ACCIDENT [None]
  - CONTUSION [None]
  - COUGH [None]
  - DIARRHOEA [None]
  - EYE HAEMORRHAGE [None]
  - FALL [None]
  - FUNGAL RASH [None]
  - GOUT [None]
  - HYPERTENSION [None]
  - HYPOGLYCAEMIA [None]
  - INJURY [None]
  - OEDEMA [None]
  - OEDEMA PERIPHERAL [None]
  - ORAL PAIN [None]
  - PANCYTOPENIA [None]
  - RENAL CYST [None]
  - RENAL FAILURE CHRONIC [None]
  - SOFT TISSUE INJURY [None]
  - TRANSIENT ISCHAEMIC ATTACK [None]
